FAERS Safety Report 24584284 (Version 1)
Quarter: 2024Q4

REPORT INFORMATION
  Report Type: Spontaneous
  Country: US (occurrence: None)
  Receive Date: 20241105
  Receipt Date: 20241105
  Transmission Date: 20250115
  Serious: Yes (Disabling)
  Sender: Public
  Company Number: None

PATIENT
  Age: 41 Year
  Sex: Female
  Weight: 57.15 kg

DRUGS (7)
  1. LEXAPRO [Suspect]
     Active Substance: ESCITALOPRAM OXALATE
     Indication: Anxiety
     Route: 048
     Dates: start: 20230130, end: 20240806
  2. LILETTA [Concomitant]
     Active Substance: LEVONORGESTREL
  3. DORZOLAMIDE [Concomitant]
     Active Substance: DORZOLAMIDE
  4. RHOPRESSA [Concomitant]
     Active Substance: NETARSUDIL MESYLATE
  5. TRAVATAN Z [Concomitant]
     Active Substance: TRAVOPROST
  6. vitamin d [Concomitant]
  7. iron supplement [Concomitant]

REACTIONS (5)
  - Immune system disorder [None]
  - Respiratory disorder [None]
  - Nasopharyngitis [None]
  - Influenza [None]
  - Viral infection [None]

NARRATIVE: CASE EVENT DATE: 20240108
